FAERS Safety Report 19452859 (Version 1)
Quarter: 2021Q2

REPORT INFORMATION
  Report Type: Spontaneous
  Country: AU (occurrence: AU)
  Receive Date: 20210623
  Receipt Date: 20210623
  Transmission Date: 20210717
  Serious: Yes (Other)
  Sender: FDA-Public Use
  Company Number: AU-MYLANLABS-2021M1036582

PATIENT
  Age: 72 Year
  Sex: Male

DRUGS (1)
  1. CLOZARIL [Suspect]
     Active Substance: CLOZAPINE
     Indication: SCHIZOPHRENIA
     Dosage: 175 MILLIGRAM
     Route: 048
     Dates: start: 20210601, end: 202106

REACTIONS (2)
  - C-reactive protein increased [Unknown]
  - Troponin increased [Unknown]

NARRATIVE: CASE EVENT DATE: 202106
